FAERS Safety Report 7390546-9 (Version None)
Quarter: 2011Q2

REPORT INFORMATION
  Report Type: 
  Country: None (occurrence: None)
  Receive Date: 20110403
  Receipt Date: 20090915
  Transmission Date: 20111010
  Serious: Yes (Other)
  Sender: FDA-Public Use
  Company Number: PHHY2009DE67726

PATIENT
  Sex: Female

DRUGS (4)
  1. EXTAVIA [Suspect]
     Dosage: 1 ML, QOD
     Route: 058
     Dates: start: 20090831
  2. TOPIRAMATE [Concomitant]
     Indication: MIGRAINE
     Dosage: 100 MG PER DAY
     Route: 048
     Dates: start: 20080101
  3. RELPAX [Concomitant]
     Indication: MIGRAINE
     Dosage: 40 MG, PRN
     Route: 048
     Dates: start: 20060101
  4. METOPROLOL [Concomitant]
     Indication: MIGRAINE
     Dosage: 200 MG PER DAY
     Route: 048
     Dates: start: 20050101

REACTIONS (8)
  - RASH GENERALISED [None]
  - PRURITUS GENERALISED [None]
  - ABDOMINAL PAIN [None]
  - VOMITING [None]
  - HEADACHE [None]
  - PYREXIA [None]
  - THROMBOPHLEBITIS SUPERFICIAL [None]
  - NAUSEA [None]
